FAERS Safety Report 6479830-0 (Version None)
Quarter: 2009Q4

REPORT INFORMATION
  Report Type: 
  Country: None (occurrence: None)
  Receive Date: 20091208
  Receipt Date: 20091125
  Transmission Date: 20100525
  Serious: Yes (Hospitalization)
  Sender: FDA-Public Use
  Company Number: SG-ROCHE-665535

PATIENT
  Sex: Female
  Weight: 61.7 kg

DRUGS (12)
  1. METHOXY POLYETHYLENE GLYCOL-EPOETIN BETA [Suspect]
     Dosage: FORM: PFS, DOSE: VARYING
     Route: 058
     Dates: start: 20090107
  2. METHOXY POLYETHYLENE GLYCOL-EPOETIN BETA [Suspect]
     Dosage: FREQUENCY REPORTED - BIWEEKLY
     Route: 058
     Dates: start: 20090204
  3. METHOXY POLYETHYLENE GLYCOL-EPOETIN BETA [Suspect]
     Route: 058
     Dates: start: 20090304
  4. METHOXY POLYETHYLENE GLYCOL-EPOETIN BETA [Suspect]
     Route: 058
     Dates: start: 20091007
  5. LOSARTAN [Concomitant]
     Dates: start: 20080509
  6. SIMVASTATIN [Concomitant]
     Dates: start: 20081117
  7. ATENOLOL [Concomitant]
     Dates: start: 20050118
  8. RENALVITE [Concomitant]
     Dates: start: 20061101
  9. ADALAT [Concomitant]
     Dates: start: 20060226
  10. CALCIUM CARBONATE [Concomitant]
     Dates: start: 20090122
  11. NOVOLET [Concomitant]
     Dates: start: 20090907
  12. GLUCOSAMINE [Concomitant]
     Dates: start: 20090909

REACTIONS (3)
  - ACUTE CORONARY SYNDROME [None]
  - ACUTE MYOCARDIAL INFARCTION [None]
  - BRAIN NATRIURETIC PEPTIDE INCREASED [None]
